FAERS Safety Report 6872512-2 (Version None)
Quarter: 2010Q3

REPORT INFORMATION
  Report Type: 
  Country: None (occurrence: None)
  Receive Date: 20100723
  Receipt Date: 20081028
  Transmission Date: 20110219
  Serious: Yes (Other)
  Sender: FDA-Public Use
  Company Number: US-PFIZER INC-2008078868

PATIENT
  Sex: Male
  Weight: 93 kg

DRUGS (2)
  1. CHANTIX [Suspect]
     Indication: NICOTINE DEPENDENCE
     Route: 048
     Dates: start: 20080701, end: 20080801
  2. CHANTIX [Suspect]
     Indication: TOBACCO WITHDRAWAL SYMPTOMS

REACTIONS (4)
  - IMPAIRED WORK ABILITY [None]
  - MOOD ALTERED [None]
  - NAUSEA [None]
  - SOMNOLENCE [None]
